FAERS Safety Report 17137788 (Version 1)
Quarter: 2019Q4

REPORT INFORMATION
  Report Type: Report from Study
  Country: FR (occurrence: FR)
  Receive Date: 20191211
  Receipt Date: 20191211
  Transmission Date: 20200122
  Serious: Yes (Other)
  Sender: FDA-Public Use
  Company Number: FR-ROCHE-2490197

PATIENT
  Age: 78 Year
  Sex: Female

DRUGS (10)
  1. OFLOCET [OFLOXACIN] [Concomitant]
     Active Substance: OFLOXACIN
     Route: 048
     Dates: start: 20190411, end: 20190418
  2. ATACAND [Concomitant]
     Active Substance: CANDESARTAN CILEXETIL
  3. CARBOPLATIN. [Concomitant]
     Active Substance: CARBOPLATIN
     Route: 065
     Dates: start: 20180109, end: 20180528
  4. ORACILLINE [PHENOXYMETHYLPENICILLIN] [Concomitant]
     Active Substance: PENICILLIN V
     Route: 048
  5. ATEZOLIZUMAB. [Suspect]
     Active Substance: ATEZOLIZUMAB
     Indication: OVARIAN CANCER
     Route: 042
     Dates: start: 20180109, end: 20190107
  6. INEGY [Concomitant]
     Active Substance: EZETIMIBE\SIMVASTATIN
  7. BEVACIZUMAB. [Suspect]
     Active Substance: BEVACIZUMAB
     Indication: OVARIAN CANCER
     Route: 042
     Dates: start: 20180109, end: 20190412
  8. PEGYLATED LIPOSOMAL DOXORUBICIN [Concomitant]
     Active Substance: DOXORUBICIN
     Route: 065
     Dates: start: 20180109, end: 20180528
  9. SOLUPRED [PREDNISOLONE METASULFOBENZOATE SODIUM] [Concomitant]
     Active Substance: PREDNISOLONE SODIUM METAZOATE
  10. KARDEGIC [Concomitant]
     Active Substance: ASPIRIN DL-LYSINE

REACTIONS (1)
  - Tendon rupture [Recovered/Resolved]

NARRATIVE: CASE EVENT DATE: 20190420
